FAERS Safety Report 18688609 (Version 1)
Quarter: 2020Q4

REPORT INFORMATION
  Report Type: Spontaneous
  Country: US (occurrence: US)
  Receive Date: 20201231
  Receipt Date: 20201231
  Transmission Date: 20210114
  Serious: No
  Sender: FDA-Public Use
  Company Number: None

PATIENT
  Age: 71 Year
  Sex: Male
  Weight: 80.6 kg

DRUGS (3)
  1. REMDESIVIR. [Suspect]
     Active Substance: REMDESIVIR
     Indication: COVID-19
     Dosage: ?          OTHER FREQUENCY:ONCE;?
     Route: 042
     Dates: start: 20201204, end: 20201205
  2. DEXAMETHASONE. [Concomitant]
     Active Substance: DEXAMETHASONE
     Dates: start: 20201203, end: 20201211
  3. ACETAMINOPHEN PRN (4 DOSES TOTAL) [Concomitant]
     Dates: start: 20201203, end: 20201208

REACTIONS (2)
  - Intentional product use issue [None]
  - Alanine aminotransferase increased [None]

NARRATIVE: CASE EVENT DATE: 20201204
